FAERS Safety Report 16004719 (Version 1)
Quarter: 2019Q1

REPORT INFORMATION
  Report Type: Spontaneous
  Country: GB (occurrence: GB)
  Receive Date: 20190226
  Receipt Date: 20190226
  Transmission Date: 20190418
  Serious: Yes (Other)
  Sender: FDA-Public Use
  Company Number: GB-SUN PHARMACEUTICAL INDUSTRIES LTD-2019RR-200226

PATIENT
  Sex: Female

DRUGS (3)
  1. CYANOCOBALAMIN. [Concomitant]
     Active Substance: CYANOCOBALAMIN
     Indication: COELIAC DISEASE
     Dosage: 50 MILLIGRAM
     Route: 048
     Dates: start: 20161017
  2. CITALOPRAM [Suspect]
     Active Substance: CITALOPRAM HYDROBROMIDE
     Indication: DEPRESSION
     Dosage: 20 MILLIGRAM
     Route: 048
     Dates: start: 20181206, end: 20181208
  3. CALCIUM AND COLECALCIFEROL [Concomitant]
     Indication: COELIAC DISEASE
     Dosage: ()
     Route: 048
     Dates: start: 20100506

REACTIONS (1)
  - Angle closure glaucoma [Recovering/Resolving]

NARRATIVE: CASE EVENT DATE: 20181208
